FAERS Safety Report 10302878 (Version 2)
Quarter: 2014Q4

REPORT INFORMATION
  Report Type: Spontaneous
  Country: US (occurrence: US)
  Receive Date: 20140714
  Receipt Date: 20141205
  Transmission Date: 20150528
  Serious: No
  Sender: FDA-Public Use
  Company Number: US-BRISTOL-MYERS SQUIBB COMPANY-20896809

PATIENT
  Age: 77 Year
  Sex: Male

DRUGS (12)
  1. FAMOTIDINE. [Concomitant]
     Active Substance: FAMOTIDINE
     Indication: GASTRIC DISORDER
  2. NULOJIX [Suspect]
     Active Substance: BELATACEPT
     Indication: IMMUNOSUPPRESSION
     Route: 042
     Dates: start: 20140508
  3. EPOETIN ALFA [Concomitant]
     Active Substance: ERYTHROPOIETIN
  4. ROSUVASTATIN [Concomitant]
     Active Substance: ROSUVASTATIN
     Indication: HYPERCHOLESTEROLAEMIA
  5. CLONIDINE. [Concomitant]
     Active Substance: CLONIDINE
     Indication: HYPERTENSION
  6. FUROSEMIDE. [Concomitant]
     Active Substance: FUROSEMIDE
     Indication: HYPOMAGNESAEMIA
  7. NIFEDIPINE. [Concomitant]
     Active Substance: NIFEDIPINE
     Indication: HYPERTENSION
  8. PREDNISONE. [Concomitant]
     Active Substance: PREDNISONE
     Indication: RENAL TRANSPLANT
  9. CALCITRIOL. [Concomitant]
     Active Substance: CALCITRIOL
     Indication: HYPERPARATHYROIDISM
  10. POTASSIUM CHLORIDE. [Concomitant]
     Active Substance: POTASSIUM CHLORIDE
     Indication: PROPHYLAXIS
  11. CARVEDILOL. [Concomitant]
     Active Substance: CARVEDILOL
     Indication: HYPERTENSION
  12. MYCOPHENOLATE MOFETIL. [Concomitant]
     Active Substance: MYCOPHENOLATE MOFETIL
     Indication: KIDNEY TRANSPLANT REJECTION

REACTIONS (1)
  - Haematuria [Recovered/Resolved]

NARRATIVE: CASE EVENT DATE: 20140529
